FAERS Safety Report 4944548-X (Version None)
Quarter: 2006Q1

REPORT INFORMATION
  Report Type: 
  Country: None (occurrence: None)
  Receive Date: 20060117
  Receipt Date: 20051215
  Transmission Date: 20060701
  Serious: Yes (Other)
  Sender: FDA-Public Use
  Company Number: 2005137239

PATIENT
  Age: 86 Year
  Sex: Male

DRUGS (7)
  1. MACUGEN [Suspect]
     Indication: MACULAR DEGENERATION
     Dosage: INTRAOCULAR
     Route: 031
     Dates: start: 20050601
  2. SINEMET [Concomitant]
  3. ACETYLSALICYLIC ACID SRT [Concomitant]
  4. MULTIVITAMIN [Concomitant]
  5. VITAMIN D [Concomitant]
  6. ASCORBIC ACID [Concomitant]
  7. VITAMIN B-12 [Concomitant]

REACTIONS (9)
  - BLOOD PRESSURE INCREASED [None]
  - EYE HAEMORRHAGE [None]
  - EYE PAIN [None]
  - EYE SWELLING [None]
  - HEART RATE INCREASED [None]
  - OCULAR HYPERAEMIA [None]
  - PARKINSON'S DISEASE [None]
  - VISUAL ACUITY REDUCED [None]
  - VISUAL DISTURBANCE [None]
